FAERS Safety Report 14285507 (Version 1)
Quarter: 2017Q4

REPORT INFORMATION
  Report Type: Spontaneous
  Country: US (occurrence: US)
  Receive Date: 20171214
  Receipt Date: 20171214
  Transmission Date: 20180321
  Serious: No
  Sender: FDA-Public Use
  Company Number: None

PATIENT
  Sex: Female
  Weight: 85.5 kg

DRUGS (5)
  1. HYDROCHLOROTHIAZIDE. [Concomitant]
     Active Substance: HYDROCHLOROTHIAZIDE
  2. XARELTO [Suspect]
     Active Substance: RIVAROXABAN
     Indication: PULMONARY EMBOLISM
     Dosage: ?          QUANTITY:1 TABLET(S);?
     Route: 048
     Dates: start: 20171102, end: 20171127
  3. L-THYROXINE [Concomitant]
     Active Substance: LEVOTHYROXINE
  4. XARELTO [Suspect]
     Active Substance: RIVAROXABAN
     Indication: PULMONARY EMBOLISM
     Dosage: ?          QUANTITY:1 TABLET(S);?
     Route: 048
     Dates: start: 20171127, end: 20171212
  5. OSCAL+ D [Concomitant]

REACTIONS (29)
  - Intra-abdominal fluid collection [None]
  - Localised oedema [None]
  - Oropharyngeal pain [None]
  - Rash erythematous [None]
  - Back pain [None]
  - Rash generalised [None]
  - Chest discomfort [None]
  - Pruritus [None]
  - Hypoaesthesia [None]
  - Dysuria [None]
  - Constipation [None]
  - Chest pain [None]
  - Rash [None]
  - Dry mouth [None]
  - Epistaxis [None]
  - Therapy change [None]
  - Dyspnoea [None]
  - Genital blister [None]
  - Oral mucosal blistering [None]
  - Dysphagia [None]
  - Ocular hyperaemia [None]
  - Insomnia [None]
  - Abdominal distension [None]
  - Pollakiuria [None]
  - Pain in extremity [None]
  - Stomatitis [None]
  - Nasal discomfort [None]
  - Muscular weakness [None]
  - Breath odour [None]

NARRATIVE: CASE EVENT DATE: 20171102
